FAERS Safety Report 10216052 (Version 1)
Quarter: 2014Q2

REPORT INFORMATION
  Report Type: Spontaneous
  Country: US (occurrence: None)
  Receive Date: 20140603
  Receipt Date: 20140603
  Transmission Date: 20141212
  Serious: No
  Sender: FDA-Public Use
  Company Number: None

PATIENT
  Age: 59 Year
  Sex: Male
  Weight: 131.54 kg

DRUGS (2)
  1. METRONIDAZOLE [Suspect]
     Indication: ENDODONTIC PROCEDURE
     Route: 048
     Dates: start: 20140520, end: 20140524
  2. METRONIDAZOLE [Suspect]
     Route: 048
     Dates: start: 20140520, end: 20140524

REACTIONS (8)
  - Dizziness [None]
  - Dysstasia [None]
  - Gait disturbance [None]
  - Vertigo [None]
  - Disorientation [None]
  - Dysarthria [None]
  - Drug interaction [None]
  - Swelling face [None]
